FAERS Safety Report 17732500 (Version 2)
Quarter: 2021Q2

REPORT INFORMATION
  Report Type: Spontaneous
  Country: US (occurrence: US)
  Receive Date: 20200501
  Receipt Date: 20210616
  Transmission Date: 20210716
  Serious: Yes (Other)
  Sender: FDA-Public Use
  Company Number: US-ASTRAZENECA-2020SE56637

PATIENT
  Age: 27430 Day
  Sex: Female
  Weight: 81.2 kg

DRUGS (77)
  1. PRILOSEC [Suspect]
     Active Substance: OMEPRAZOLE MAGNESIUM
     Indication: GASTROOESOPHAGEAL REFLUX DISEASE
     Dosage: GENERIC
     Route: 065
     Dates: start: 2011
  2. PRILOSEC OTC [Suspect]
     Active Substance: OMEPRAZOLE MAGNESIUM
     Indication: DYSPEPSIA
     Route: 048
     Dates: start: 2003, end: 2014
  3. HYDRALAZINE [Concomitant]
     Active Substance: HYDRALAZINE HYDROCHLORIDE
  4. SPIRONOLACTONE. [Concomitant]
     Active Substance: SPIRONOLACTONE
  5. HYOSCYAMINE. [Concomitant]
     Active Substance: HYOSCYAMINE
  6. NEXIUM [Suspect]
     Active Substance: ESOMEPRAZOLE MAGNESIUM
     Indication: DYSPEPSIA
     Route: 048
     Dates: start: 200001, end: 201401
  7. NEXIUM [Suspect]
     Active Substance: ESOMEPRAZOLE MAGNESIUM
     Indication: GASTROOESOPHAGEAL REFLUX DISEASE
     Route: 048
     Dates: start: 200001, end: 201401
  8. AMOXICILLIN. [Concomitant]
     Active Substance: AMOXICILLIN
  9. METRONIDAZOLE. [Concomitant]
     Active Substance: METRONIDAZOLE
  10. PREDNISONE. [Concomitant]
     Active Substance: PREDNISONE
  11. PROPRANOLOL [Concomitant]
     Active Substance: PROPRANOLOL HYDROCHLORIDE
  12. ZOSTER [Concomitant]
  13. PRILOSEC [Suspect]
     Active Substance: OMEPRAZOLE MAGNESIUM
     Indication: GASTROOESOPHAGEAL REFLUX DISEASE
     Route: 048
     Dates: start: 200001, end: 201401
  14. PRILOSEC [Suspect]
     Active Substance: OMEPRAZOLE MAGNESIUM
     Indication: DYSPEPSIA
     Dosage: GENERIC
     Route: 065
     Dates: start: 2011
  15. PRILOSEC OTC [Suspect]
     Active Substance: OMEPRAZOLE MAGNESIUM
     Indication: GASTROOESOPHAGEAL REFLUX DISEASE
     Route: 048
     Dates: start: 2003, end: 2014
  16. HYDROQUINONE. [Concomitant]
     Active Substance: HYDROQUINONE
  17. SIMVASTATIN. [Concomitant]
     Active Substance: SIMVASTATIN
  18. ZOLPIDEM TARTRATE. [Concomitant]
     Active Substance: ZOLPIDEM TARTRATE
  19. PATADAY [Concomitant]
     Active Substance: OLOPATADINE HYDROCHLORIDE
  20. CEFADROXIL. [Concomitant]
     Active Substance: CEFADROXIL
  21. DIPHENOXYLATE [Concomitant]
     Active Substance: DIPHENOXYLATE
  22. COLESTIPOL [Concomitant]
     Active Substance: COLESTIPOL
  23. LIDOCAINE. [Concomitant]
     Active Substance: LIDOCAINE
  24. EPINEPHRINE. [Concomitant]
     Active Substance: EPINEPHRINE
  25. IODINE. [Concomitant]
     Active Substance: IODINE
  26. NEXIUM [Suspect]
     Active Substance: ESOMEPRAZOLE MAGNESIUM
     Indication: DYSPEPSIA
     Route: 048
     Dates: start: 2000, end: 2014
  27. PRILOSEC [Suspect]
     Active Substance: OMEPRAZOLE MAGNESIUM
     Indication: DYSPEPSIA
     Route: 048
     Dates: start: 200001, end: 201401
  28. PRILOSEC [Suspect]
     Active Substance: OMEPRAZOLE MAGNESIUM
     Indication: DYSPEPSIA
     Route: 048
     Dates: start: 2000, end: 2014
  29. ATORVASTATIN [Concomitant]
     Active Substance: ATORVASTATIN
  30. ALPHAGNA [Concomitant]
  31. BENZALKONIUM/TOBRAMYCIN/DEXAMETHASONE [Concomitant]
  32. PNEUMOVAX 23 [Concomitant]
     Active Substance: PNEUMOCOCCAL VACCINE, POLYVALENT 23
  33. SERTRALINE HYDROCHLORIDE. [Concomitant]
     Active Substance: SERTRALINE HYDROCHLORIDE
  34. BENTYL [Concomitant]
     Active Substance: DICYCLOMINE HYDROCHLORIDE
  35. METAMUCIL [Concomitant]
     Active Substance: PLANTAGO SEED
  36. PREVACID [Suspect]
     Active Substance: LANSOPRAZOLE
     Indication: DYSPEPSIA
     Route: 065
     Dates: start: 2000, end: 2014
  37. CEFUROXIME. [Concomitant]
     Active Substance: CEFUROXIME
  38. LIPITOR [Concomitant]
     Active Substance: ATORVASTATIN CALCIUM
  39. CLONIDINE. [Concomitant]
     Active Substance: CLONIDINE
  40. ISOSORBIDE DINITRATE. [Concomitant]
     Active Substance: ISOSORBIDE DINITRATE
  41. VIBERZI [Concomitant]
     Active Substance: ELUXADOLINE
  42. CYANOCOBALAMIN. [Concomitant]
     Active Substance: CYANOCOBALAMIN
  43. TETRACYCLINE/NYSTATIN/CHLORPHENAMINE/2?DEOXY?D?GLUCOSE/DIPHENHYDRAMINE [Concomitant]
  44. TYLENOL [Concomitant]
     Active Substance: ACETAMINOPHEN
  45. PRILOSEC [Suspect]
     Active Substance: OMEPRAZOLE MAGNESIUM
     Indication: GASTROOESOPHAGEAL REFLUX DISEASE
     Route: 048
     Dates: start: 2000, end: 2014
  46. PREVACID [Suspect]
     Active Substance: LANSOPRAZOLE
     Indication: GASTROOESOPHAGEAL REFLUX DISEASE
     Route: 065
     Dates: start: 2000, end: 2014
  47. VERAPAMIL [Concomitant]
     Active Substance: VERAPAMIL HYDROCHLORIDE
  48. MELOXICAM. [Concomitant]
     Active Substance: MELOXICAM
  49. AMLOPIDINE BESYLATE [Concomitant]
     Active Substance: AMLODIPINE BESYLATE
  50. INDOMETHACIN. [Concomitant]
     Active Substance: INDOMETHACIN
  51. FLUCONAZOLE. [Concomitant]
     Active Substance: FLUCONAZOLE
  52. PRAVASTATIN SODIUM. [Concomitant]
     Active Substance: PRAVASTATIN SODIUM
  53. AZELASTINE. [Concomitant]
     Active Substance: AZELASTINE HYDROCHLORIDE
  54. MECLIZINE [Concomitant]
     Active Substance: MECLIZINE HYDROCHLORIDE
  55. CHLORTHALIDONE. [Concomitant]
     Active Substance: CHLORTHALIDONE
  56. ONDANSETRON [Concomitant]
     Active Substance: ONDANSETRON
  57. LIVALO [Concomitant]
     Active Substance: PITAVASTATIN CALCIUM
  58. OXYBUTYNIN CHLORIDE. [Concomitant]
     Active Substance: OXYBUTYNIN CHLORIDE
  59. LORATADINE. [Concomitant]
     Active Substance: LORATADINE
  60. CHOLESTYRAMINE. [Concomitant]
     Active Substance: CHOLESTYRAMINE
  61. FUROSEMIDE. [Concomitant]
     Active Substance: FUROSEMIDE
  62. NEXIUM [Suspect]
     Active Substance: ESOMEPRAZOLE MAGNESIUM
     Indication: GASTROOESOPHAGEAL REFLUX DISEASE
     Route: 048
     Dates: start: 2000, end: 2014
  63. PREVACID [Suspect]
     Active Substance: LANSOPRAZOLE
     Indication: DYSPEPSIA
     Route: 065
     Dates: start: 200001, end: 201401
  64. TRIAMTERENE. [Concomitant]
     Active Substance: TRIAMTERENE
  65. MAGNESIUM OXIDE. [Concomitant]
     Active Substance: MAGNESIUM OXIDE
  66. TRAMADOL. [Concomitant]
     Active Substance: TRAMADOL
  67. HYDROCHLOROTHIAZIDE. [Concomitant]
     Active Substance: HYDROCHLOROTHIAZIDE
  68. DORZOLAMIDE [Concomitant]
     Active Substance: DORZOLAMIDE
  69. TRAZODONE [Concomitant]
     Active Substance: TRAZODONE HYDROCHLORIDE
  70. NYSTATIN. [Concomitant]
     Active Substance: NYSTATIN
  71. BEXXAR [Concomitant]
     Active Substance: TOSITUMOMAB I-131
  72. SHINGRIX [Concomitant]
     Active Substance: RECOMBINANT VARICELLA ZOSTER VIRUS (VZV) GLYCOPROTEIN E
  73. PREVACID [Suspect]
     Active Substance: LANSOPRAZOLE
     Indication: GASTROOESOPHAGEAL REFLUX DISEASE
     Route: 065
     Dates: start: 200001, end: 201401
  74. LYRICA [Concomitant]
     Active Substance: PREGABALIN
  75. HYDROCODONE/PARACETAMOL [Concomitant]
     Active Substance: ACETAMINOPHEN\HYDROCODONE BITARTRATE
  76. PSYLLIUM [Concomitant]
     Active Substance: PLANTAGO SEED
  77. RANITIDINE HYDROCHLORIDE. [Concomitant]
     Active Substance: RANITIDINE HYDROCHLORIDE

REACTIONS (1)
  - Chronic kidney disease [Not Recovered/Not Resolved]

NARRATIVE: CASE EVENT DATE: 20131119
